FAERS Safety Report 15391577 (Version 1)
Quarter: 2018Q3

REPORT INFORMATION
  Report Type: Spontaneous
  Country: JP (occurrence: JP)
  Receive Date: 20180917
  Receipt Date: 20180917
  Transmission Date: 20181010
  Serious: Yes (Hospitalization)
  Sender: FDA-Public Use
  Company Number: JP-009507513-1808JPN002774J

PATIENT
  Age: 49 Year
  Sex: Male
  Weight: 92 kg

DRUGS (2)
  1. TALION [Suspect]
     Active Substance: BEPOTASTINE
     Indication: ECZEMA
     Dosage: 10 MG, BID
     Route: 048
     Dates: start: 20180824
  2. DESALEX TABLETS 5MG [Suspect]
     Active Substance: DESLORATADINE
     Indication: ECZEMA
     Dosage: 5 MG, QD
     Route: 048
     Dates: start: 20180821, end: 20180823

REACTIONS (1)
  - Eczema [Unknown]

NARRATIVE: CASE EVENT DATE: 20180824
